FAERS Safety Report 10155243 (Version 1)
Quarter: 2014Q2

REPORT INFORMATION
  Report Type: Spontaneous
  Country: US (occurrence: US)
  Receive Date: 20140506
  Receipt Date: 20140506
  Transmission Date: 20141212
  Serious: No
  Sender: FDA-Public Use
  Company Number: US-009507513-1404USA002624

PATIENT
  Age: 77 Year
  Sex: Male
  Weight: 81.63 kg

DRUGS (15)
  1. CLARITIN-D [Suspect]
     Indication: NASAL CONGESTION
     Dosage: 10 MG, QPM
     Route: 048
     Dates: start: 20140203, end: 20140208
  2. ADVIL [Concomitant]
     Indication: PAIN
     Dosage: 600 MG, PRN
     Route: 048
  3. ALLEGRA-D 24 HOUR [Concomitant]
     Indication: HYPERSENSITIVITY
     Route: 048
  4. ASPIRIN [Concomitant]
     Indication: PRODUCT USED FOR UNKNOWN INDICATION
     Dosage: UNK, QD
     Route: 048
  5. CALTRATE (CALCIUM CARBONATE (+) CHOLECALCIFEROL) [Concomitant]
     Indication: PRODUCT USED FOR UNKNOWN INDICATION
  6. KENALOG [Concomitant]
     Indication: APHTHOUS STOMATITIS
  7. LIPITOR [Concomitant]
     Indication: PRODUCT USED FOR UNKNOWN INDICATION
     Dosage: 40 MG, QPM
     Route: 048
  8. CENTRUM (MINERALS (UNSPECIFIED) (+) VITAMINS (UNSPECIFIED)) [Concomitant]
     Indication: PRODUCT USED FOR UNKNOWN INDICATION
     Dosage: UNK, QD
     Route: 048
  9. LOPRESSOR [Concomitant]
     Indication: PRODUCT USED FOR UNKNOWN INDICATION
     Dosage: 50 MG, BID
     Route: 048
  10. PANTOPRAZOLE [Concomitant]
     Indication: PRODUCT USED FOR UNKNOWN INDICATION
     Dosage: 40 MG, QD
     Route: 048
  11. PLAVIX [Concomitant]
     Indication: PRODUCT USED FOR UNKNOWN INDICATION
     Dosage: 75 MG, QD
     Route: 048
  12. ULTRAM [Concomitant]
     Indication: PAIN
     Dosage: 50 MG, PRN
  13. TYLENOL EXTRA STRENGTH [Concomitant]
     Indication: PAIN
     Dosage: 1500 MG, PRN
     Route: 048
  14. VITAMIN D (UNSPECIFIED) [Concomitant]
     Indication: PRODUCT USED FOR UNKNOWN INDICATION
     Dosage: UNK, QD
     Route: 048
  15. ALPROSTADIL (+) PAPAVERINE HYDROCHLORIDE (+) PHENTOLAMINE MESYLATE [Concomitant]
     Indication: PRODUCT USED FOR UNKNOWN INDICATION
     Dosage: UNK, PRN
     Route: 017

REACTIONS (1)
  - Rash [Recovering/Resolving]
